FAERS Safety Report 6648221-1 (Version None)
Quarter: 2010Q1

REPORT INFORMATION
  Report Type: 
  Country: None (occurrence: None)
  Receive Date: 20100318
  Receipt Date: 20100308
  Transmission Date: 20100710
  Serious: Yes (Other)
  Sender: FDA-Public Use
  Company Number: 1000004763

PATIENT
  Age: 70 Year
  Sex: Female

DRUGS (3)
  1. MEMANTINE HCL [Suspect]
     Indication: DEMENTIA
     Dosage: 20 MG
  2. ESCITALOPRAM [Suspect]
     Dosage: (10 MG) ORAL
     Route: 048
  3. DONEPEZIL HCL [Suspect]

REACTIONS (2)
  - MANIA [None]
  - PARANOIA [None]
